FAERS Safety Report 20656662 (Version 2)
Quarter: 2022Q2

REPORT INFORMATION
  Report Type: Report from Study
  Country: US (occurrence: US)
  Receive Date: 20220331
  Receipt Date: 20220504
  Transmission Date: 20220720
  Serious: Yes (Hospitalization, Other)
  Sender: FDA-Public Use
  Company Number: US-ABBVIE-22K-163-4337623-00

PATIENT
  Sex: Female

DRUGS (1)
  1. HUMIRA [Suspect]
     Active Substance: ADALIMUMAB
     Indication: Rheumatoid arthritis
     Route: 058

REACTIONS (6)
  - Loss of consciousness [Recovered/Resolved]
  - Sepsis [Recovering/Resolving]
  - Immunodeficiency [Unknown]
  - Anxiety [Unknown]
  - Urinary tract infection [Unknown]
  - COVID-19 [Recovering/Resolving]
